FAERS Safety Report 8102032-9 (Version None)
Quarter: 2012Q1

REPORT INFORMATION
  Report Type: 
  Country: None (occurrence: None)
  Receive Date: 20120131
  Receipt Date: 20120124
  Transmission Date: 20120608
  Serious: Yes (Hospitalization, Other)
  Sender: FDA-Public Use
  Company Number: US-ASTRAZENECA-2012SE00341

PATIENT
  Age: 60 Year
  Sex: Female

DRUGS (2)
  1. NEXIUM [Suspect]
     Route: 048
  2. CRESTOR [Suspect]
     Route: 048

REACTIONS (3)
  - ROAD TRAFFIC ACCIDENT [None]
  - ABASIA [None]
  - LOWER LIMB FRACTURE [None]
